FAERS Safety Report 7594517-9 (Version None)
Quarter: 2011Q2

REPORT INFORMATION
  Report Type: 
  Country: None (occurrence: None)
  Receive Date: 20110628
  Receipt Date: 20110614
  Transmission Date: 20111010
  Serious: Yes (Hospitalization, Other)
  Sender: FDA-Public Use
  Company Number: 2010AL002997

PATIENT
  Age: 76 Year
  Sex: Male
  Weight: 78.9259 kg

DRUGS (36)
  1. PHENOBARBITAL TAB [Concomitant]
  2. DARVOCET-N 50 [Concomitant]
  3. CALAN [Concomitant]
  4. AMPICILLIN SODIUM [Concomitant]
  5. DIGOXIN [Concomitant]
  6. PHENERGAN HCL [Concomitant]
  7. PEPCID [Concomitant]
  8. ASPIRIN [Concomitant]
  9. ZANTAC [Concomitant]
  10. NEXIUM [Concomitant]
  11. ACIPHEX [Concomitant]
  12. AZITHROMYCIN [Concomitant]
  13. PROMETHAZINE [Concomitant]
  14. MAGNESIUM [Concomitant]
  15. NORVASC [Concomitant]
  16. CARDURA [Concomitant]
  17. BELLADONNA TINCTURE [Concomitant]
  18. INDOMETHACIN [Concomitant]
  19. NITROGLYCERIN [Concomitant]
  20. DIOVAN [Concomitant]
  21. DOXASOSIN [Concomitant]
  22. CARAFATE [Concomitant]
  23. ZESTRIL [Concomitant]
  24. PANTOPRAZOLE SODIUM [Concomitant]
  25. BACTRIM [Concomitant]
  26. LANOXIN [Concomitant]
  27. LISINOPRIL [Concomitant]
  28. PRILOSEC [Concomitant]
  29. PROTONIX [Concomitant]
  30. PRINZIDE [Concomitant]
  31. ATENOLOL [Concomitant]
  32. METOCLOPRAMIDE [Suspect]
     Indication: IMPAIRED GASTRIC EMPTYING
     Dosage: 10 MG;QD
     Dates: start: 20080418, end: 20081117
  33. ATENOLOL [Concomitant]
  34. ZESTORETIC [Concomitant]
  35. TYLENOL-500 [Concomitant]
  36. AVANDIA [Concomitant]

REACTIONS (50)
  - PAIN [None]
  - MALAISE [None]
  - NAUSEA [None]
  - HIATUS HERNIA [None]
  - HICCUPS [None]
  - WEIGHT DECREASED [None]
  - VENTRICULAR TACHYCARDIA [None]
  - MACULAR DEGENERATION [None]
  - DEPRESSIVE SYMPTOM [None]
  - ALOPECIA [None]
  - EAR PAIN [None]
  - HIP ARTHROPLASTY [None]
  - GASTRIC ULCER [None]
  - NO THERAPEUTIC RESPONSE [None]
  - BACK PAIN [None]
  - DEAFNESS [None]
  - NERVOUSNESS [None]
  - POLLAKIURIA [None]
  - HOT FLUSH [None]
  - PRODUCT SUBSTITUTION ISSUE [None]
  - INAPPROPRIATE SCHEDULE OF DRUG ADMINISTRATION [None]
  - FATIGUE [None]
  - GASTROOESOPHAGEAL REFLUX DISEASE [None]
  - CARDIAC FAILURE CONGESTIVE [None]
  - URINARY HESITATION [None]
  - PRESYNCOPE [None]
  - HYPOTHYROIDISM [None]
  - TARDIVE DYSKINESIA [None]
  - HYPOTENSION [None]
  - SURGICAL FAILURE [None]
  - HAIR GROWTH ABNORMAL [None]
  - TREATMENT NONCOMPLIANCE [None]
  - ABDOMINAL PAIN [None]
  - DIZZINESS [None]
  - TINNITUS [None]
  - RASH [None]
  - STRESS [None]
  - HYPERHIDROSIS [None]
  - CONSTIPATION [None]
  - PROSTATIC SPECIFIC ANTIGEN INCREASED [None]
  - ESSENTIAL HYPERTENSION [None]
  - VENTRICULAR EXTRASYSTOLES [None]
  - VITILIGO [None]
  - DRUG INEFFECTIVE [None]
  - SPEECH DISORDER [None]
  - DECREASED APPETITE [None]
  - ARTHRALGIA [None]
  - HEART VALVE INCOMPETENCE [None]
  - JOINT RANGE OF MOTION DECREASED [None]
  - BLOOD GLUCOSE INCREASED [None]
